FAERS Safety Report 20693511 (Version 3)
Quarter: 2022Q2

REPORT INFORMATION
  Report Type: Spontaneous
  Country: US (occurrence: US)
  Receive Date: 20220411
  Receipt Date: 20220425
  Transmission Date: 20220721
  Serious: No
  Sender: FDA-Public Use
  Company Number: US-GLAXOSMITHKLINE-US2022060233

PATIENT
  Age: 59 Year
  Sex: Female

DRUGS (1)
  1. ZEJULA [Suspect]
     Active Substance: NIRAPARIB
     Indication: Metastases to ovary
     Dosage: 300 MG, QD
     Route: 048
     Dates: start: 20220330, end: 20220419

REACTIONS (3)
  - Nausea [Unknown]
  - Constipation [Not Recovered/Not Resolved]
  - Petechiae [Not Recovered/Not Resolved]

NARRATIVE: CASE EVENT DATE: 20220416
